FAERS Safety Report 8490205-5 (Version None)
Quarter: 2012Q3

REPORT INFORMATION
  Report Type: 
  Country: None (occurrence: None)
  Receive Date: 20120705
  Receipt Date: 20110824
  Transmission Date: 20120928
  Serious: No
  Sender: FDA-Public Use
  Company Number: US-BAUSCH-2011BL005626

PATIENT
  Age: 81 Year
  Sex: Male

DRUGS (2)
  1. OPCON-A [Suspect]
     Indication: EYE PRURITUS
     Route: 047
     Dates: start: 20110823, end: 20110823
  2. OPCON-A [Suspect]
     Indication: OCULAR HYPERAEMIA
     Route: 047
     Dates: start: 20110823, end: 20110823

REACTIONS (4)
  - OCULAR HYPERAEMIA [None]
  - DRUG INEFFECTIVE [None]
  - EYE IRRITATION [None]
  - EYE PAIN [None]
